FAERS Safety Report 7232755-5 (Version None)
Quarter: 2011Q1

REPORT INFORMATION
  Report Type: 
  Country: None (occurrence: None)
  Receive Date: 20110110
  Receipt Date: 20101229
  Transmission Date: 20110831
  Serious: Yes (Other)
  Sender: FDA-Public Use
  Company Number: RU-1184549

PATIENT
  Age: 67 Year
  Sex: Female

DRUGS (1)
  1. AZOPT [Suspect]
     Indication: GLAUCOMA
     Dosage: OPHTHALMIC
     Route: 047
     Dates: start: 20100501

REACTIONS (3)
  - DYSPNOEA [None]
  - ASPHYXIA [None]
  - LEFT VENTRICULAR DYSFUNCTION [None]
